FAERS Safety Report 8132574-1 (Version None)
Quarter: 2012Q1

REPORT INFORMATION
  Report Type: 
  Country: None (occurrence: None)
  Receive Date: 20120213
  Receipt Date: 20120206
  Transmission Date: 20120608
  Serious: Yes (Other)
  Sender: FDA-Public Use
  Company Number: US-BAYER-2011-075000

PATIENT
  Age: 26 Year
  Sex: Female
  Weight: 90.703 kg

DRUGS (3)
  1. YASMIN [Suspect]
  2. MOTRIN [Concomitant]
     Dosage: 400 MG, UNK
  3. CIPROFLOXACIN [Concomitant]

REACTIONS (3)
  - CHOLECYSTITIS CHRONIC [None]
  - BILIARY DYSKINESIA [None]
  - GALLBLADDER INJURY [None]
